FAERS Safety Report 11044821 (Version 1)
Quarter: 2015Q2

REPORT INFORMATION
  Report Type: Spontaneous
  Country: US (occurrence: None)
  Receive Date: 20150415
  Receipt Date: 20150415
  Transmission Date: 20150821
  Serious: No
  Sender: FDA-Public Use
  Company Number: SP09289

PATIENT
  Age: 52 Year
  Sex: Female
  Weight: 81.65 kg

DRUGS (7)
  1. DEXILANT [Concomitant]
     Active Substance: DEXLANSOPRAZOLE
  2. LAXATIVES [Concomitant]
     Active Substance: UNSPECIFIED INGREDIENT
  3. RELISTOR [Suspect]
     Active Substance: METHYLNALTREXONE BROMIDE
     Indication: CONSTIPATION
     Route: 058
     Dates: start: 201503, end: 20150405
  4. VICODIN [Concomitant]
     Active Substance: ACETAMINOPHEN\HYDROCODONE BITARTRATE
  5. MORPHINE [Concomitant]
     Active Substance: MORPHINE
  6. HYDROCHLOROTHIAZIDE. [Concomitant]
     Active Substance: HYDROCHLOROTHIAZIDE
  7. PANADEINE [Concomitant]
     Active Substance: ACETAMINOPHEN\CODEINE PHOSPHATE

REACTIONS (6)
  - Tremor [None]
  - Chills [None]
  - Palpitations [None]
  - Drug withdrawal syndrome [None]
  - Pain [None]
  - Vomiting [None]

NARRATIVE: CASE EVENT DATE: 201503
